FAERS Safety Report 6273807-6 (Version None)
Quarter: 2009Q3

REPORT INFORMATION
  Report Type: 
  Country: None (occurrence: None)
  Receive Date: 20090720
  Receipt Date: 20090713
  Transmission Date: 20100115
  Serious: Yes (Other)
  Sender: FDA-Public Use
  Company Number: B0584527A

PATIENT
  Sex: Female

DRUGS (9)
  1. LAMICTAL [Suspect]
     Indication: EPILEPSY
     Dosage: 4MG PER DAY
     Route: 048
     Dates: start: 20090211, end: 20090630
  2. PHENOBARBITAL TAB [Concomitant]
     Route: 048
  3. EXCEGRAN [Concomitant]
     Route: 048
  4. DANTRIUM [Concomitant]
     Route: 048
  5. DOPAR [Concomitant]
     Route: 048
  6. LIORESAL [Concomitant]
     Route: 048
  7. TIZANIDINE HCL [Concomitant]
     Route: 048
  8. BISOLVON [Concomitant]
     Route: 048
  9. CLEANAL [Concomitant]
     Route: 048

REACTIONS (1)
  - FANCONI SYNDROME [None]
